FAERS Safety Report 7670485-6 (Version None)
Quarter: 2011Q3

REPORT INFORMATION
  Report Type: 
  Country: None (occurrence: None)
  Receive Date: 20110809
  Receipt Date: 20110801
  Transmission Date: 20111222
  Serious: No
  Sender: FDA-Public Use
  Company Number: US-BIOGENIDEC-2011BI028654

PATIENT
  Sex: Male

DRUGS (1)
  1. TYSABRI [Suspect]
     Indication: CROHN'S DISEASE
     Route: 042
     Dates: start: 20110328, end: 20110620

REACTIONS (5)
  - FEELING ABNORMAL [None]
  - ASTHENIA [None]
  - MEMORY IMPAIRMENT [None]
  - DECREASED APPETITE [None]
  - VERTIGO [None]
